FAERS Safety Report 9090430 (Version 1)
Quarter: 2013Q1

REPORT INFORMATION
  Report Type: Report from Study
  Country: CA (occurrence: CA)
  Receive Date: 20130201
  Receipt Date: 20130201
  Transmission Date: 20140127
  Serious: Yes (Other)
  Sender: FDA-Public Use
  Company Number: CA-UCBSA-076977

PATIENT
  Sex: Female
  Weight: 90.7 kg

DRUGS (10)
  1. CIMZIA [Suspect]
     Indication: RHEUMATOID ARTHRITIS
     Route: 058
     Dates: start: 20110414, end: 20110512
  2. CIMZIA [Suspect]
     Indication: RHEUMATOID ARTHRITIS
     Route: 058
     Dates: start: 20110516
  3. MTX [Concomitant]
     Indication: RHEUMATOID ARTHRITIS
     Dosage: DOSE: 20 MG WEEKLY
     Route: 048
     Dates: start: 200907
  4. CYMBALTA [Concomitant]
     Dosage: UNKNOWN
  5. LIPITOR [Concomitant]
     Dosage: UNKNOWN
  6. PREVACID [Concomitant]
     Dosage: UNKNOWN
  7. HYDROCHLORTHIAZIDE [Concomitant]
     Dosage: UNKNOWN
  8. SEROQUEL [Concomitant]
     Dosage: UNKNOWN
  9. PRISTIQ [Concomitant]
     Dosage: UNKNOWN
  10. CHLOAZEPAM [Concomitant]
     Dosage: UNKNOWN

REACTIONS (1)
  - Rotator cuff syndrome [Unknown]
